FAERS Safety Report 15376667 (Version 1)
Quarter: 2018Q3

REPORT INFORMATION
  Report Type: Report from Study
  Country: CA (occurrence: CA)
  Receive Date: 20180912
  Receipt Date: 20180912
  Transmission Date: 20181010
  Serious: Yes (Hospitalization, Other)
  Sender: FDA-Public Use
  Company Number: CA-ROCHE-2037519

PATIENT
  Age: 80 Year
  Sex: Female

DRUGS (7)
  1. RITUXAN [Suspect]
     Active Substance: RITUXIMAB
     Indication: GRANULOMATOSIS WITH POLYANGIITIS
     Dosage: FREQUENCY:  DAY 1, 15?PREVIOUS RITUXIMAB DOSE WAS RECEIVED ON 28/NOV/2017.
     Route: 042
     Dates: start: 2011
  2. CITALOPRAM [Concomitant]
     Active Substance: CITALOPRAM HYDROBROMIDE
  3. ALENDRONATE [Concomitant]
     Active Substance: ALENDRONATE SODIUM
  4. AZATHIOPRINE. [Concomitant]
     Active Substance: AZATHIOPRINE
  5. OMEPRAZOLE. [Concomitant]
     Active Substance: OMEPRAZOLE
  6. PREDNISONE. [Concomitant]
     Active Substance: PREDNISONE
  7. TICAGRELOR. [Concomitant]
     Active Substance: TICAGRELOR

REACTIONS (3)
  - Myocardial infarction [Unknown]
  - Dyspnoea [Unknown]
  - Arthropathy [Unknown]

NARRATIVE: CASE EVENT DATE: 201712
